FAERS Safety Report 7978766-3 (Version None)
Quarter: 2011Q4

REPORT INFORMATION
  Report Type: 
  Country: None (occurrence: None)
  Receive Date: 20111129
  Receipt Date: 20110829
  Transmission Date: 20120403
  Serious: Yes (Death, Hospitalization, Other)
  Sender: FDA-Public Use
  Company Number: PHHY2011US38098

PATIENT
  Age: 56 Year
  Sex: Female

DRUGS (4)
  1. AFINITOR [Suspect]
     Indication: MALIGNANT SOFT TISSUE NEOPLASM
     Dosage: 10 MG, QD, ORAL
     Route: 048
     Dates: start: 20110325, end: 20110421
  2. MEGACE [Concomitant]
  3. OXAZOLINE (OXYMETAZOLINE HYDROCHLORIDE) [Concomitant]
  4. FLAGYL [Concomitant]

REACTIONS (9)
  - METABOLIC ACIDOSIS [None]
  - METASTASES TO BONE [None]
  - RENAL FAILURE [None]
  - CLOSTRIDIUM DIFFICILE COLITIS [None]
  - NEOPLASM PROGRESSION [None]
  - BLOOD UREA INCREASED [None]
  - NEOPLASM MALIGNANT [None]
  - LUNG NEOPLASM [None]
  - BLOOD CREATININE INCREASED [None]
